FAERS Safety Report 6594657-7 (Version None)
Quarter: 2010Q1

REPORT INFORMATION
  Report Type: 
  Country: None (occurrence: None)
  Receive Date: 20100222
  Receipt Date: 20100212
  Transmission Date: 20100710
  Serious: Yes (Life-Threatening, Other)
  Sender: FDA-Public Use
  Company Number: NL-AMGEN-US393458

PATIENT
  Age: 57 Year
  Sex: Female

DRUGS (8)
  1. ENBREL [Suspect]
     Indication: DRUG USE FOR UNKNOWN INDICATION
     Route: 058
     Dates: start: 20100126
  2. RASILEZ [Concomitant]
     Dosage: 300 MG
     Route: 065
  3. FERO-GRAD [Concomitant]
     Dosage: ONE TIME ADMINSTRATION
     Route: 065
  4. COZAAR [Concomitant]
     Dosage: 100 MG
     Route: 065
  5. PREDNISONE [Concomitant]
     Dosage: 7.5 MG
     Route: 065
  6. LOSEC [Concomitant]
     Dosage: 40 MG
     Route: 065
  7. SOTALOL [Concomitant]
     Dosage: 2X 40 MG
     Route: 065
  8. HYDROCHLOROTHIAZIDE [Concomitant]
     Dosage: 12.5 MG
     Route: 065

REACTIONS (5)
  - HYPERTENSION [None]
  - NAUSEA [None]
  - PALPITATIONS [None]
  - VISION BLURRED [None]
  - VISUAL ACUITY REDUCED [None]
